FAERS Safety Report 8837193 (Version 1)
Quarter: 2012Q4

REPORT INFORMATION
  Report Type: 
  Country: EC (occurrence: EC)
  Receive Date: 20121012
  Receipt Date: 20121012
  Transmission Date: 20130627
  Serious: Yes (Other)
  Sender: FDA-Public Use
  Company Number: PHHY2012EC090075

PATIENT
  Sex: Female

DRUGS (1)
  1. EXFORGE [Suspect]
     Indication: HYPERTENSION
     Dosage: 1 DF (160/10 mg), Daily
     Route: 048
     Dates: start: 20080509

REACTIONS (1)
  - Pterygium [Recovering/Resolving]
